FAERS Safety Report 5243831-0 (Version None)
Quarter: 2007Q1

REPORT INFORMATION
  Report Type: 
  Country: None (occurrence: None)
  Receive Date: 20070215
  Receipt Date: 20070205
  Transmission Date: 20070707
  Serious: Yes (Death)
  Sender: FDA-Public Use
  Company Number: 2007000067

PATIENT
  Age: 51 Year
  Sex: Male

DRUGS (9)
  1. ERLOTINIB (TABLET) (ERLOTINIB HCL) [Suspect]
     Indication: PANCREATIC CARCINOMA METASTATIC
     Dosage: 100 MG (QD); ORAL
     Route: 048
     Dates: start: 20060224, end: 20061220
  2. PLACEBO (INJECTION FOR INFUSION) [Suspect]
     Indication: PANCREATIC CARCINOMA METASTATIC
     Dosage: INTRAVENOUS
     Route: 042
     Dates: start: 20060224, end: 20061018
  3. GEMCITABINE [Suspect]
     Indication: PANCREATIC CARCINOMA METASTATIC
     Dosage: 2000 MG (WEEKLY); INTRAVENOUS
     Route: 042
     Dates: start: 20060224, end: 20061220
  4. NOVOMIX (INSULIN ASPART) [Suspect]
     Dosage: 26 IU
     Dates: start: 20050615
  5. CIPROFLOXACIN [Suspect]
     Dosage: 1000 MG;
     Dates: start: 20061127
  6. CITODON (PANADEINE CO) [Suspect]
     Dosage: 1 PRN;
     Dates: start: 20061015
  7. MORPHINE SULFATE [Suspect]
     Dosage: 60 MG,
     Dates: start: 20061215
  8. CAPECITABINE (CAPECITABINE) [Suspect]
     Dates: start: 20061221
  9. OXALIPLATIN [Suspect]
     Dates: start: 20061221

REACTIONS (2)
  - CARDIAC ARREST [None]
  - DISEASE PROGRESSION [None]
